FAERS Safety Report 8270808-3 (Version None)
Quarter: 2012Q2

REPORT INFORMATION
  Report Type: 
  Country: None (occurrence: None)
  Receive Date: 20120410
  Receipt Date: 20120326
  Transmission Date: 20120825
  Serious: Yes (Other)
  Sender: FDA-Public Use
  Company Number: HU-ROCHE-1053856

PATIENT
  Sex: Female
  Weight: 74 kg

DRUGS (11)
  1. INDAPAMIDE [Concomitant]
  2. TAMIFLU [Suspect]
     Indication: INFLUENZA
     Dosage: FREQUENCY: Q24H
     Route: 042
     Dates: start: 20120321
  3. ALBUTEROL [Concomitant]
     Dates: start: 20120320
  4. AMBROXOL [Concomitant]
     Dates: start: 20120320
  5. GLICLAZIDE [Concomitant]
  6. THEOPHYLLINE [Concomitant]
     Dates: start: 20120322
  7. CARVEDILOL [Concomitant]
  8. PERINDOPRIL ARGININE [Concomitant]
  9. RILMENIDINE [Concomitant]
  10. GLARGINE [Concomitant]
     Dates: start: 20080101
  11. ATORVASTATIN [Concomitant]

REACTIONS (1)
  - FALL [None]
